FAERS Safety Report 22089681 (Version 5)
Quarter: 2023Q2

REPORT INFORMATION
  Report Type: Report from Study
  Country: JP (occurrence: JP)
  Receive Date: 20230313
  Receipt Date: 20230623
  Transmission Date: 20230722
  Serious: Yes (Hospitalization, Other)
  Sender: FDA-Public Use
  Company Number: JP-TAKEDA-2023TJP003218

PATIENT
  Age: 64 Year
  Sex: Male
  Weight: 82.2 kg

DRUGS (3)
  1. CABOMETYX [Suspect]
     Active Substance: CABOZANTINIB S-MALATE
     Indication: Renal cell carcinoma stage IV
     Dosage: 60 MG, QD
     Route: 048
     Dates: start: 20221108, end: 20221224
  2. CABOMETYX [Suspect]
     Active Substance: CABOZANTINIB S-MALATE
     Dosage: 40 MG, QD
     Route: 048
     Dates: start: 20230131
  3. DIOVAN [Suspect]
     Active Substance: VALSARTAN
     Dosage: UNK
     Route: 065
     Dates: start: 20221213, end: 20221228

REACTIONS (2)
  - Liver function test abnormal [Recovering/Resolving]
  - Stomatitis [Recovering/Resolving]

NARRATIVE: CASE EVENT DATE: 20221213
